FAERS Safety Report 18929602 (Version 2)
Quarter: 2021Q1

REPORT INFORMATION
  Report Type: Spontaneous
  Country: RU (occurrence: RU)
  Receive Date: 20210223
  Receipt Date: 20210302
  Transmission Date: 20210420
  Serious: Yes (Other)
  Sender: FDA-Public Use
  Company Number: RU-FRESENIUS KABI-FK202101698

PATIENT
  Age: 11 Year
  Sex: Male

DRUGS (6)
  1. ETOPOSIDE (MANUFACTURER UNKNOWN) [Suspect]
     Active Substance: ETOPOSIDE
     Indication: ANAPLASTIC LARGE-CELL LYMPHOMA
     Route: 065
  2. CYCLOPHOSPHAMIDE. [Concomitant]
     Active Substance: CYCLOPHOSPHAMIDE
     Indication: ANAPLASTIC LARGE-CELL LYMPHOMA
     Dosage: CYTOREDUCTIVE PREPHASE
     Route: 065
  3. DEXAMETHASONE. [Concomitant]
     Active Substance: DEXAMETHASONE
     Indication: ANAPLASTIC LARGE-CELL LYMPHOMA
     Dosage: CYTOREDUCTIVE PREPHASE
     Route: 065
  4. DEXAMETHASONE. [Concomitant]
     Active Substance: DEXAMETHASONE
     Dosage: POLYCHEMOTHERAPY
     Route: 065
  5. CYTARABINE. [Concomitant]
     Active Substance: CYTARABINE
     Indication: ANAPLASTIC LARGE-CELL LYMPHOMA
     Route: 065
  6. CYCLOPHOSPHAMIDE. [Concomitant]
     Active Substance: CYCLOPHOSPHAMIDE
     Dosage: POLYCHEMOTHERAPY
     Route: 065

REACTIONS (3)
  - Bone marrow failure [Unknown]
  - Septic shock [Unknown]
  - Disseminated intravascular coagulation [Unknown]
